FAERS Safety Report 21773369 (Version 1)
Quarter: 2022Q4

REPORT INFORMATION
  Report Type: Spontaneous
  Country: US (occurrence: US)
  Receive Date: 20221223
  Receipt Date: 20221223
  Transmission Date: 20230112
  Serious: Yes (Other)
  Sender: FDA-Public Use
  Company Number: US-GLAXOSMITHKLINE-USCH2022050513

PATIENT

DRUGS (1)
  1. ADVIL [Suspect]
     Active Substance: IBUPROFEN
     Indication: Product used for unknown indication
     Dosage: 2 DF
     Dates: start: 20221215

REACTIONS (2)
  - Seizure like phenomena [Unknown]
  - Hypoglycaemic seizure [Unknown]

NARRATIVE: CASE EVENT DATE: 20221215
